FAERS Safety Report 13321530 (Version 5)
Quarter: 2018Q2

REPORT INFORMATION
  Report Type: Report from Study
  Country: US (occurrence: US)
  Receive Date: 20170310
  Receipt Date: 20180405
  Transmission Date: 20180711
  Serious: Yes (Hospitalization, Other)
  Sender: FDA-Public Use
  Company Number: US-SA-2017SA038314

PATIENT
  Age: 58 Year
  Sex: Female

DRUGS (22)
  1. LEMTRADA [Suspect]
     Active Substance: ALEMTUZUMAB
     Indication: MULTIPLE SCLEROSIS
     Route: 041
     Dates: start: 20180307, end: 20180307
  2. CHROMIUM PICOLINATE [Concomitant]
     Active Substance: CHROMIUM PICOLINATE
     Route: 048
  3. GABAPENTIN. [Concomitant]
     Active Substance: GABAPENTIN
     Route: 048
  4. DEHYDROEPIANDROSTERONE [Concomitant]
     Active Substance: PRASTERONE
     Route: 048
  5. VITAMIN D3 [Concomitant]
     Active Substance: CHOLECALCIFEROL
     Dosage: DOSE:5000 UNIT(S)
     Route: 048
  6. LEMTRADA [Suspect]
     Active Substance: ALEMTUZUMAB
     Indication: MULTIPLE SCLEROSIS
     Route: 041
     Dates: start: 20180312, end: 20180313
  7. BIOTIN [Concomitant]
     Active Substance: BIOTIN
     Route: 048
  8. ALPHA LIPOIC ACID [Concomitant]
     Active Substance: .ALPHA.-LIPOIC ACID
     Route: 048
  9. LISINOPRIL. [Concomitant]
     Active Substance: LISINOPRIL
     Route: 048
  10. BUPROPION. [Concomitant]
     Active Substance: BUPROPION
     Route: 048
  11. LIOTHYRONINE [Concomitant]
     Active Substance: LIOTHYRONINE
     Route: 048
  12. LEVOTHYROXINE. [Concomitant]
     Active Substance: LEVOTHYROXINE
     Dosage: EVERY OTHER DAY FOR 4 DAYS A WEEK
     Route: 048
  13. LEMTRADA [Suspect]
     Active Substance: ALEMTUZUMAB
     Indication: MULTIPLE SCLEROSIS
     Route: 041
     Dates: start: 20170220, end: 20170224
  14. DOXYCYCLINE. [Concomitant]
     Active Substance: DOXYCYCLINE
     Route: 048
  15. DEHYDROEPIANDROSTERONE [Concomitant]
     Active Substance: PRASTERONE
     Route: 048
  16. MAGNESIUM OROTATE [Concomitant]
     Route: 048
  17. TRAMADOL. [Concomitant]
     Active Substance: TRAMADOL
     Route: 048
  18. CLARITIN [Concomitant]
     Active Substance: LORATADINE
     Route: 048
  19. CYMBALTA [Concomitant]
     Active Substance: DULOXETINE HYDROCHLORIDE
     Route: 048
  20. COENZYME Q10 [Concomitant]
     Active Substance: UBIDECARENONE
     Route: 048
  21. LEVOTHYROXINE. [Concomitant]
     Active Substance: LEVOTHYROXINE
     Dosage: EVERY OTHER DAY FOR 3 DAYS A WEEK
     Route: 048
  22. ACYCLOVIR. [Concomitant]
     Active Substance: ACYCLOVIR
     Route: 048

REACTIONS (13)
  - Chromaturia [Not Recovered/Not Resolved]
  - Feeling abnormal [Recovering/Resolving]
  - Limb discomfort [Unknown]
  - Catheter site pain [Not Recovered/Not Resolved]
  - Immune thrombocytopenic purpura [Unknown]
  - Contusion [Unknown]
  - Muscle spasticity [Not Recovered/Not Resolved]
  - Rash [Recovered/Resolved]
  - Deep vein thrombosis [Unknown]
  - Back pain [Recovered/Resolved]
  - Ill-defined disorder [Unknown]
  - Headache [Recovered/Resolved]
  - Vein disorder [Not Recovered/Not Resolved]

NARRATIVE: CASE EVENT DATE: 201702
